FAERS Safety Report 12156354 (Version 3)
Quarter: 2018Q3

REPORT INFORMATION
  Report Type: Spontaneous
  Country: US (occurrence: US)
  Receive Date: 20160307
  Receipt Date: 20180809
  Transmission Date: 20181010
  Serious: Yes (Other)
  Sender: FDA-Public Use
  Company Number: US-ELI_LILLY_AND_COMPANY-US201603000254

PATIENT
  Sex: Male

DRUGS (1)
  1. CIALIS [Suspect]
     Active Substance: TADALAFIL
     Indication: ERECTILE DYSFUNCTION
     Dosage: 10 MG, UNKNOWN
     Route: 065
     Dates: start: 20150702

REACTIONS (6)
  - Optic ischaemic neuropathy [Unknown]
  - Emotional distress [Unknown]
  - Pain [Unknown]
  - Blindness unilateral [Unknown]
  - Multiple injuries [Unknown]
  - Anxiety [Unknown]

NARRATIVE: CASE EVENT DATE: 20150708
